FAERS Safety Report 4309438-4 (Version None)
Quarter: 2004Q1

REPORT INFORMATION
  Report Type: 
  Country: None (occurrence: None)
  Receive Date: 20040302
  Receipt Date: 20040220
  Transmission Date: 20041129
  Serious: Yes (Other)
  Sender: FDA-Public Use
  Company Number: PHBS2004CA02548

PATIENT
  Sex: Male

DRUGS (1)
  1. CLOZARIL [Suspect]
     Route: 048

REACTIONS (4)
  - BLOOD GASES ABNORMAL [None]
  - EOSINOPHIL COUNT INCREASED [None]
  - OXYGEN SATURATION ABNORMAL [None]
  - PNEUMONITIS [None]
